FAERS Safety Report 7869289-0 (Version None)
Quarter: 2011Q4

REPORT INFORMATION
  Report Type: 
  Country: None (occurrence: None)
  Receive Date: 20111028
  Receipt Date: 20101229
  Transmission Date: 20120403
  Serious: No
  Sender: FDA-Public Use
  Company Number: US-AMGEN-USASP2010012348

PATIENT
  Age: 64 Year
  Weight: 56.236 kg

DRUGS (12)
  1. KLONOPIN [Concomitant]
  2. FISH OIL [Concomitant]
  3. COQ-10 [Concomitant]
     Dosage: 100 MG, UNK
  4. GLUCOSAMINE /CHOND                 /01639101/ [Concomitant]
     Dosage: 250 UNK, UNK
  5. ATENOLOL [Concomitant]
     Dosage: 100 MG, UNK
  6. FLUOXETINE HCL [Concomitant]
     Dosage: 10 MG, UNK
  7. ENBREL [Suspect]
     Indication: PRODUCT USED FOR UNKNOWN INDICATION
     Dosage: 50 MG, QWK
     Route: 058
  8. CELEBREX [Concomitant]
     Dosage: 100 MG, UNK
  9. VITAMIN B                          /00056102/ [Concomitant]
  10. CALCIUM [Concomitant]
     Dosage: 500 UNK, UNK
  11. VITAMIN D [Concomitant]
     Dosage: UNK
  12. FOLIC ACID [Concomitant]
     Dosage: 1 MG, UNK

REACTIONS (2)
  - DIARRHOEA [None]
  - INFLUENZA [None]
